FAERS Safety Report 20730405 (Version 2)
Quarter: 2022Q3

REPORT INFORMATION
  Report Type: Spontaneous
  Country: US (occurrence: US)
  Receive Date: 20220420
  Receipt Date: 20220812
  Transmission Date: 20221027
  Serious: Yes (Other)
  Sender: FDA-Public Use
  Company Number: US-BRISTOL-MYERS SQUIBB COMPANY-2022-012465

PATIENT
  Age: 69 Year
  Sex: Female
  Weight: 58 kg

DRUGS (2)
  1. POMALYST [Suspect]
     Active Substance: POMALIDOMIDE
     Indication: Plasma cell myeloma
     Dosage: FREQUENCY :2W ON, 2 W OFF
     Route: 048
     Dates: start: 20210120
  2. POMALYST [Suspect]
     Active Substance: POMALIDOMIDE
     Dosage: 14 DAY ON 14 OFF
     Route: 048

REACTIONS (11)
  - Fatigue [Unknown]
  - Asthenia [Unknown]
  - Neuropathy peripheral [Unknown]
  - Vision blurred [Unknown]
  - Dry throat [Unknown]
  - Alopecia [Unknown]
  - Muscle spasms [Unknown]
  - Dyspnoea [Unknown]
  - Intentional product use issue [Unknown]
  - Tongue dry [Unknown]
  - Memory impairment [Unknown]
